FAERS Safety Report 4996826-6 (Version None)
Quarter: 2006Q2

REPORT INFORMATION
  Report Type: 
  Country: None (occurrence: None)
  Receive Date: 20060505
  Receipt Date: 20060425
  Transmission Date: 20061013
  Serious: Yes (Other)
  Sender: FDA-Public Use
  Company Number: 2006018063

PATIENT
  Age: 65 Year
  Sex: Male
  Weight: 142.8831 kg

DRUGS (6)
  1. NEURONTIN [Suspect]
     Indication: DIABETIC NEUROPATHY
     Dosage: 400 MG (100 MG, 4 IN 1 D)
     Dates: end: 20060202
  2. LYRICA [Suspect]
     Indication: DIABETIC NEUROPATHY
     Dosage: 150 MG (50 MG, 3 IN 1 D)
     Dates: start: 20060202
  3. GLUCOPHAGE [Concomitant]
  4. PRANDIN [Concomitant]
  5. ADVICOR [Concomitant]
  6. LASIX [Concomitant]

REACTIONS (5)
  - BREAST CANCER MALE [None]
  - DRUG INEFFECTIVE [None]
  - LYMPHOEDEMA [None]
  - MASS [None]
  - SWELLING [None]
